FAERS Safety Report 8496715-9 (Version None)
Quarter: 2012Q3

REPORT INFORMATION
  Report Type: 
  Country: None (occurrence: None)
  Receive Date: 20120709
  Receipt Date: 20120705
  Transmission Date: 20120928
  Serious: Yes (Death)
  Sender: FDA-Public Use
  Company Number: US-CELGENEUS-163-21880-12062087

PATIENT
  Sex: Male

DRUGS (4)
  1. LAMICTAL [Concomitant]
     Dosage: 150 MILLIGRAM
     Route: 065
  2. REVLIMID [Suspect]
     Indication: MULTIPLE MYELOMA
     Route: 048
     Dates: start: 20110311, end: 20120612
  3. CALCIUM + D [Concomitant]
     Route: 065
  4. FOLIC ACID [Concomitant]
     Dosage: 1 MILLIGRAM
     Route: 065

REACTIONS (1)
  - DEATH [None]
